FAERS Safety Report 5837384-3 (Version None)
Quarter: 2008Q3

REPORT INFORMATION
  Report Type: 
  Country: None (occurrence: None)
  Receive Date: 20080807
  Receipt Date: 20080729
  Transmission Date: 20090109
  Serious: Yes (Hospitalization, Congenital Anomaly, Other)
  Sender: FDA-Public Use
  Company Number: US-PFIZER INC-2007095293

PATIENT
  Sex: Female

DRUGS (1)
  1. ZOLOFT [Suspect]
     Indication: POSTPARTUM DEPRESSION
     Route: 064
     Dates: start: 20040501, end: 20050201

REACTIONS (18)
  - ANOMALOUS PULMONARY VENOUS CONNECTION [None]
  - ARRHYTHMIA [None]
  - ATRIOVENTRICULAR BLOCK COMPLETE [None]
  - CONGENITAL HYDRONEPHROSIS [None]
  - CROUP INFECTIOUS [None]
  - CYANOSIS NEONATAL [None]
  - DILATATION VENTRICULAR [None]
  - DRUG EXPOSURE DURING PREGNANCY [None]
  - EAR INFECTION [None]
  - MATERNAL DRUGS AFFECTING FOETUS [None]
  - NASAL CONGESTION [None]
  - NEONATAL TACHYPNOEA [None]
  - OTITIS MEDIA [None]
  - POST PROCEDURAL COMPLICATION [None]
  - RESPIRATORY TRACT INFECTION [None]
  - SCAR [None]
  - SEPSIS NEONATAL [None]
  - VENTRICULAR SEPTAL DEFECT [None]
